FAERS Safety Report 14189138 (Version 1)
Quarter: 2017Q4

REPORT INFORMATION
  Report Type: Report from Study
  Country: US (occurrence: US)
  Receive Date: 20171115
  Receipt Date: 20171115
  Transmission Date: 20180321
  Serious: Yes (Other)
  Sender: FDA-Public Use
  Company Number: US-ROCHE-2024100

PATIENT

DRUGS (3)
  1. HEPARIN [Suspect]
     Active Substance: HEPARIN SODIUM
     Indication: ANTICOAGULANT THERAPY
     Route: 065
  2. STREPTOKINASE [Suspect]
     Active Substance: STREPTOKINASE
     Indication: THROMBOLYSIS
     Route: 065
  3. ALTEPLASE. [Suspect]
     Active Substance: ALTEPLASE
     Indication: THROMBOLYSIS
     Route: 065

REACTIONS (6)
  - Embolic stroke [Unknown]
  - Haemorrhage [Unknown]
  - Haemorrhagic stroke [Unknown]
  - Cardiac tamponade [Unknown]
  - Haemorrhage intracranial [Unknown]
  - Haemodynamic instability [Unknown]
